FAERS Safety Report 6378447-6 (Version None)
Quarter: 2009Q3

REPORT INFORMATION
  Report Type: 
  Country: None (occurrence: None)
  Receive Date: 20090927
  Receipt Date: 20090918
  Transmission Date: 20100115
  Serious: Yes (Other)
  Sender: FDA-Public Use
  Company Number: US-BAYER-200933262NA

PATIENT
  Age: 37 Year
  Sex: Female

DRUGS (1)
  1. MAGNEVIST [Suspect]
     Indication: NUCLEAR MAGNETIC RESONANCE IMAGING
     Dosage: TOTAL DAILY DOSE: 15 ML  UNIT DOSE: 20 ML
     Route: 042
     Dates: start: 20090910, end: 20090910

REACTIONS (4)
  - COUGH [None]
  - DYSPNOEA [None]
  - INJECTION SITE PAIN [None]
  - WHEEZING [None]
